FAERS Safety Report 10698246 (Version 2)
Quarter: 2014Q3

REPORT INFORMATION
  Report Type: Spontaneous
  Country: US (occurrence: US)
  Receive Date: 20140916
  Receipt Date: 20140916
  Transmission Date: 20150326
  Serious: Yes (Hospitalization, Other)
  Sender: FDA-Public Use
  Company Number: US-APOTEX-2014AP004634

PATIENT
  Age: 23 Year
  Sex: Female

DRUGS (4)
  1. LORAZEPAM. [Concomitant]
     Active Substance: LORAZEPAM
     Indication: GENERALISED TONIC-CLONIC SEIZURE
     Dosage: 2 MG, UNK
     Route: 065
  2. LEVETIRACETAM. [Suspect]
     Active Substance: LEVETIRACETAM
     Indication: GENERALISED TONIC-CLONIC SEIZURE
     Dosage: 1 G, LOADING DOSE
     Route: 065
  3. PHENYTOIN. [Suspect]
     Active Substance: PHENYTOIN
     Indication: GENERALISED TONIC-CLONIC SEIZURE
     Route: 065
  4. LEVETIRACETAM. [Suspect]
     Active Substance: LEVETIRACETAM
     Dosage: 500 MG,
     Route: 065

REACTIONS (3)
  - Decreased appetite [Unknown]
  - Renal failure acute [Recovered/Resolved]
  - Myalgia [Unknown]
